FAERS Safety Report 11962750 (Version 2)
Quarter: 2018Q2

REPORT INFORMATION
  Report Type: Report from Study
  Country: None (occurrence: US)
  Receive Date: 20160126
  Receipt Date: 20180507
  Transmission Date: 20180711
  Serious: Yes (Other)
  Sender: FDA-Public Use
  Company Number: US-ABBVIE-15K-163-1377636-00

PATIENT
  Age: 56 Year
  Sex: Female

DRUGS (1)
  1. HUMIRA [Suspect]
     Active Substance: ADALIMUMAB
     Indication: COLITIS ULCERATIVE
     Route: 058
     Dates: start: 2014

REACTIONS (8)
  - Deafness unilateral [Unknown]
  - Labyrinthitis [Unknown]
  - Dysphagia [Unknown]
  - Pharyngeal operation [Unknown]
  - Tracheostomy [Not Recovered/Not Resolved]
  - Back disorder [Unknown]
  - Impaired healing [Unknown]
  - Diabetes mellitus [Unknown]

NARRATIVE: CASE EVENT DATE: 20150326
